FAERS Safety Report 7811797-2 (Version None)
Quarter: 2011Q4

REPORT INFORMATION
  Report Type: 
  Country: None (occurrence: None)
  Receive Date: 20111013
  Receipt Date: 20110923
  Transmission Date: 20120403
  Serious: Yes (Hospitalization)
  Sender: FDA-Public Use
  Company Number: PHEH2011US04973

PATIENT
  Sex: Male
  Weight: 95.238 kg

DRUGS (1)
  1. EXJADE [Suspect]
     Indication: MYELOPROLIFERATIVE DISORDER
     Dosage: 500 MG, BID
     Route: 048
     Dates: start: 20090318

REACTIONS (1)
  - PNEUMONIA [None]
